FAERS Safety Report 13922851 (Version 1)
Quarter: 2017Q3

REPORT INFORMATION
  Report Type: Other
  Country: GB (occurrence: JP)
  Receive Date: 20170830
  Receipt Date: 20170830
  Transmission Date: 20171127
  Serious: Yes (Hospitalization, Other)
  Sender: FDA-Public Use
  Company Number: JP-INTERNATIONAL MEDICATION SYSTEMS, LIMITED-2025347

PATIENT
  Age: 41 Year
  Sex: Male
  Weight: 52.5 kg

DRUGS (3)
  1. ALUMINIUM POTASSIUM SULFATE INJECTION [Suspect]
     Active Substance: POTASSIUM ALUM ANHYDROUS
  2. LIDOCAINE INJECTION [Suspect]
     Active Substance: LIDOCAINE
     Indication: HAEMORRHOIDS
  3. TANNIC ACID INJECTION [Suspect]
     Active Substance: TANNIC ACID

REACTIONS (1)
  - Drug-induced liver injury [Recovering/Resolving]
